FAERS Safety Report 8267930-4 (Version None)
Quarter: 2012Q2

REPORT INFORMATION
  Report Type: 
  Country: None (occurrence: None)
  Receive Date: 20120409
  Receipt Date: 20120404
  Transmission Date: 20120825
  Serious: Yes (Other)
  Sender: FDA-Public Use
  Company Number: PHHY2012AU029307

PATIENT
  Sex: Female

DRUGS (1)
  1. ZOLEDRONOC ACID [Suspect]
     Route: 042
     Dates: start: 20110318

REACTIONS (4)
  - HYPOKINESIA [None]
  - ABDOMINAL PAIN UPPER [None]
  - GINGIVAL BLEEDING [None]
  - DIARRHOEA [None]
